FAERS Safety Report 19501881 (Version 1)
Quarter: 2021Q3

REPORT INFORMATION
  Report Type: Other
  Country: DE (occurrence: DE)
  Receive Date: 20210707
  Receipt Date: 20210707
  Transmission Date: 20211014
  Serious: Yes (Hospitalization)
  Sender: FDA-Public Use
  Company Number: DE-MACLEODS PHARMA UK LTD-MAC2021031744

PATIENT

DRUGS (4)
  1. PANTOPRAZOLE 40 MG [Suspect]
     Active Substance: PANTOPRAZOLE SODIUM
     Indication: PRODUCT USED FOR UNKNOWN INDICATION
     Dosage: 40 MILLIGRAM, QD, 1?0?0?0, PROLONGED?RELEASE TABLET
     Route: 048
  2. COLCHICINE 500 MICROGRAM TABLETS [Suspect]
     Active Substance: COLCHICINE
     Indication: PRODUCT USED FOR UNKNOWN INDICATION
     Dosage: 0.5 MILLIGRAM, TID, 1?1?1?0
     Route: 048
  3. PREDNISOLONE 20 MG TABLETS [Suspect]
     Active Substance: PREDNISOLONE
     Indication: PRODUCT USED FOR UNKNOWN INDICATION
     Dosage: 20 MILLIGRAM, QD, 1?0?0?0
     Route: 048
  4. APREMILAST 30 MG TABLET [Suspect]
     Active Substance: APREMILAST
     Indication: PRODUCT USED FOR UNKNOWN INDICATION
     Dosage: 30 MILLIGRAM, BID, 1?0?1?0
     Route: 048

REACTIONS (7)
  - Abdominal pain upper [Unknown]
  - Oral candidiasis [Unknown]
  - Nausea [Unknown]
  - Acute abdomen [Unknown]
  - Abdominal pain lower [Unknown]
  - Abdominal pain [Unknown]
  - Flatulence [Unknown]
